FAERS Safety Report 21616712 (Version 1)
Quarter: 2022Q4

REPORT INFORMATION
  Report Type: Report from Study
  Country: US (occurrence: US)
  Receive Date: 20221118
  Receipt Date: 20221118
  Transmission Date: 20230112
  Serious: No
  Sender: FDA-Public Use
  Company Number: US-ABBVIE-4158141

PATIENT
  Age: 57 Year
  Sex: Male

DRUGS (4)
  1. HUMIRA [Suspect]
     Active Substance: ADALIMUMAB
     Indication: Psoriatic arthropathy
     Route: 058
  2. HUMIRA [Suspect]
     Active Substance: ADALIMUMAB
     Route: 058
  3. MODERNA COVID-19 VACCINE [Suspect]
     Active Substance: ELASOMERAN
     Indication: COVID-19 immunisation
     Dosage: FIRST DOSE?ONE IN ONCE
     Route: 030
     Dates: start: 202104, end: 202104
  4. MODERNA COVID-19 VACCINE [Suspect]
     Active Substance: ELASOMERAN
     Indication: COVID-19 immunisation
     Dosage: BOOSTER DOSE ?ONE IN ONCE
     Route: 030
     Dates: start: 202209, end: 202209

REACTIONS (2)
  - Anaemia [Unknown]
  - Fatigue [Recovering/Resolving]

NARRATIVE: CASE EVENT DATE: 20220901
